FAERS Safety Report 24086014 (Version 1)
Quarter: 2024Q3

REPORT INFORMATION
  Report Type: Spontaneous
  Country: FR (occurrence: None)
  Receive Date: 20240712
  Receipt Date: 20240712
  Transmission Date: 20241016
  Serious: Yes (Other)
  Sender: ASTRAZENECA
  Company Number: 2024A159537

PATIENT
  Age: 55 Year
  Sex: Female
  Weight: 44 kg

DRUGS (1)
  1. DURVALUMAB [Suspect]
     Active Substance: DURVALUMAB
     Indication: Non-small cell lung cancer
     Route: 042
     Dates: start: 20201214, end: 20211122

REACTIONS (6)
  - Malignant neoplasm progression [Unknown]
  - Asthenia [Unknown]
  - Oesophagitis [Unknown]
  - Dysphagia [Unknown]
  - Epithelitis [Unknown]
  - Off label use [Unknown]

NARRATIVE: CASE EVENT DATE: 20230728
